FAERS Safety Report 12878518 (Version 1)
Quarter: 2016Q4

REPORT INFORMATION
  Report Type: Spontaneous
  Country: ES (occurrence: ES)
  Receive Date: 20161024
  Receipt Date: 20161024
  Transmission Date: 20170207
  Serious: Yes (Hospitalization)
  Sender: FDA-Public Use
  Company Number: ES-PFIZER INC-1106547

PATIENT
  Age: 73 Year
  Sex: Male

DRUGS (2)
  1. OXALIPLATIN. [Suspect]
     Active Substance: OXALIPLATIN
     Indication: RECTAL CANCER
     Dosage: 60 MG/M2, UNK
     Route: 042
  2. CAPECITABINE. [Suspect]
     Active Substance: CAPECITABINE
     Indication: RECTAL CANCER
     Dosage: 850 MG/M2, 2X/DAY

REACTIONS (3)
  - Proctitis [Recovered/Resolved]
  - Abdominal sepsis [Recovered/Resolved]
  - Pneumatosis [Recovered/Resolved]
